FAERS Safety Report 11138818 (Version 1)
Quarter: 2015Q2

REPORT INFORMATION
  Report Type: Spontaneous
  Country: BE (occurrence: BE)
  Receive Date: 20150527
  Receipt Date: 20150527
  Transmission Date: 20150821
  Serious: Yes (Other)
  Sender: FDA-Public Use
  Company Number: BE-AMGEN-BELSP2015049118

PATIENT
  Sex: Female

DRUGS (4)
  1. VECTIBIX [Suspect]
     Active Substance: PANITUMUMAB
     Indication: PRODUCT USED FOR UNKNOWN INDICATION
     Dosage: UNK
     Route: 065
  2. FLUOROURACIL. [Concomitant]
     Active Substance: FLUOROURACIL
     Dosage: UNK
  3. IRINOTECAN [Concomitant]
     Active Substance: IRINOTECAN
     Dosage: UNK
  4. FOLINIC ACID [Concomitant]
     Active Substance: LEUCOVORIN
     Dosage: UNK

REACTIONS (4)
  - Skin burning sensation [Unknown]
  - Erythema [Unknown]
  - Pain of skin [Unknown]
  - Skin toxicity [Unknown]
